FAERS Safety Report 10055268 (Version 1)
Quarter: 2014Q2

REPORT INFORMATION
  Report Type: Spontaneous
  Country: US (occurrence: US)
  Receive Date: 20140403
  Receipt Date: 20140403
  Transmission Date: 20141212
  Serious: No
  Sender: FDA-Public Use
  Company Number: US-009507513-1403USA010164

PATIENT
  Sex: Male

DRUGS (5)
  1. NASONEX [Suspect]
     Indication: HYPERSENSITIVITY
     Dosage: ONE SPRAY IN EACH NOSTRIL TWICE A DAY IN THE MORNING
     Route: 045
  2. NASONEX [Suspect]
     Indication: NASAL POLYPS
  3. LEVOXYL [Concomitant]
  4. FLOVENT [Concomitant]
  5. TEVA MONTELUKAST [Concomitant]

REACTIONS (2)
  - Nasal congestion [Unknown]
  - Product quality issue [Unknown]
